FAERS Safety Report 13794228 (Version 1)
Quarter: 2017Q3

REPORT INFORMATION
  Report Type: Spontaneous
  Country: US (occurrence: US)
  Receive Date: 20170726
  Receipt Date: 20170726
  Transmission Date: 20171127
  Serious: Yes (Death, Hospitalization)
  Sender: FDA-Public Use
  Company Number: None

PATIENT
  Age: 64 Year
  Sex: Female
  Weight: 94 kg

DRUGS (1)
  1. GEMCITABINE HYDROCHLORIDE. [Suspect]
     Active Substance: GEMCITABINE HYDROCHLORIDE
     Dates: end: 20170505

REACTIONS (10)
  - Respiratory failure [None]
  - Acute kidney injury [None]
  - Sepsis [None]
  - Blood culture positive [None]
  - Hepatic failure [None]
  - Lung infiltration [None]
  - Non-alcoholic steatohepatitis [None]
  - Streptococcal infection [None]
  - Fungal infection [None]
  - Multiple organ dysfunction syndrome [None]

NARRATIVE: CASE EVENT DATE: 20170611
